FAERS Safety Report 14819139 (Version 16)
Quarter: 2018Q4

REPORT INFORMATION
  Report Type: Spontaneous
  Country: US (occurrence: US)
  Receive Date: 20180427
  Receipt Date: 20181231
  Transmission Date: 20190204
  Serious: Yes (Other)
  Sender: FDA-Public Use
  Company Number: US-PFIZER INC-2018168422

PATIENT
  Age: 67 Year
  Sex: Female
  Weight: 87 kg

DRUGS (4)
  1. SUTENT [Suspect]
     Active Substance: SUNITINIB MALATE
     Indication: METASTATIC RENAL CELL CARCINOMA
     Dosage: 50 MG, CYCLIC (DAILY, 28 DAYS ON/14 DAYS OFF)
     Dates: start: 20180419, end: 20180509
  2. SUTENT [Suspect]
     Active Substance: SUNITINIB MALATE
     Dosage: 37.5 MG, CYCLIC (DAILY FOR 2 WEEKS ON/1 WEEK OFF)/ (37.5 MG - 2 WEEKS ON/1 WEEK OFF)
     Dates: start: 20180619, end: 2018
  3. SYNTHROID [Concomitant]
     Active Substance: LEVOTHYROXINE SODIUM
     Dosage: UNK
  4. LEVOTHYROXINE. [Concomitant]
     Active Substance: LEVOTHYROXINE
     Dosage: UNK

REACTIONS (40)
  - Asthenia [Unknown]
  - Feeling abnormal [Recovered/Resolved]
  - Swelling face [Unknown]
  - Burning sensation mucosal [Unknown]
  - Headache [Unknown]
  - Nasal dryness [Unknown]
  - Musculoskeletal pain [Unknown]
  - Rash macular [Recovered/Resolved]
  - Nasal discomfort [Not Recovered/Not Resolved]
  - Dry mouth [Unknown]
  - Peripheral swelling [Unknown]
  - Weight fluctuation [Recovered/Resolved]
  - Oral pain [Unknown]
  - Gait disturbance [Unknown]
  - Blood pressure decreased [Recovering/Resolving]
  - Renal impairment [Unknown]
  - Blood pressure fluctuation [Not Recovered/Not Resolved]
  - Restlessness [Unknown]
  - Pain in extremity [Recovered/Resolved]
  - Erythema [Not Recovered/Not Resolved]
  - Increased tendency to bruise [Unknown]
  - Arthralgia [Unknown]
  - Feeling cold [Unknown]
  - Blister [Recovered/Resolved]
  - Contusion [Unknown]
  - Fluid retention [Unknown]
  - Malaise [Unknown]
  - Hypertension [Not Recovered/Not Resolved]
  - Anxiety [Unknown]
  - Dysgeusia [Unknown]
  - Stomatitis [Not Recovered/Not Resolved]
  - Tremor [Unknown]
  - Dry skin [Unknown]
  - Swelling [Recovered/Resolved]
  - Haematochezia [Unknown]
  - Insomnia [Unknown]
  - Pollakiuria [Unknown]
  - Joint swelling [Unknown]
  - Skin lesion [Unknown]
  - Thyroid hormones increased [Recovered/Resolved]

NARRATIVE: CASE EVENT DATE: 2018
